FAERS Safety Report 12648435 (Version 1)
Quarter: 2016Q3

REPORT INFORMATION
  Report Type: Report from Study
  Country: BE (occurrence: BE)
  Receive Date: 20160812
  Receipt Date: 20160812
  Transmission Date: 20161109
  Serious: Yes (Hospitalization)
  Sender: FDA-Public Use
  Company Number: BE-ABBVIE-16K-013-1697672-00

PATIENT
  Sex: Female

DRUGS (3)
  1. DUODOPA [Suspect]
     Active Substance: CARBIDOPA\LEVODOPA
     Indication: PARKINSON^S DISEASE
     Dosage: AM= 3 ML; CD= 1.6 ML/H DURING 16 HRS; ED= 1.2 ML
     Route: 050
     Dates: start: 20110509, end: 20110512
  2. DUODOPA [Suspect]
     Active Substance: CARBIDOPA\LEVODOPA
     Dosage: AM= 3.5 ML; CD= 1.9 ML/H DURING 16 HRS; ED= 1.2 ML
     Route: 050
     Dates: start: 20140303, end: 201608
  3. DUODOPA [Suspect]
     Active Substance: CARBIDOPA\LEVODOPA
     Dosage: DOSES CONTINUOUSLY MONITORED AND ADAPTED
     Route: 050
     Dates: start: 20110512, end: 20140303

REACTIONS (3)
  - Wound infection [Unknown]
  - Device occlusion [Unknown]
  - Stoma site infection [Unknown]
